FAERS Safety Report 23160070 (Version 1)
Quarter: 2023Q4

REPORT INFORMATION
  Report Type: Spontaneous
  Country: US (occurrence: US)
  Receive Date: 20231108
  Receipt Date: 20231108
  Transmission Date: 20240109
  Serious: Yes (Other)
  Sender: FDA-Public Use
  Company Number: US-SANDOZ-SDZ2023US051056

PATIENT
  Sex: Female

DRUGS (6)
  1. AZITHROMYCIN [Suspect]
     Active Substance: AZITHROMYCIN
     Indication: Mycobacterium abscessus infection
     Dosage: UNK
     Route: 065
  2. AZITHROMYCIN [Suspect]
     Active Substance: AZITHROMYCIN
     Indication: Pneumonia
  3. ETHAMBUTOL [Suspect]
     Active Substance: ETHAMBUTOL HYDROCHLORIDE
     Indication: Mycobacterium abscessus infection
     Dosage: UNK
     Route: 065
  4. ETHAMBUTOL [Suspect]
     Active Substance: ETHAMBUTOL HYDROCHLORIDE
     Indication: Pneumonia
  5. RIFABUTIN [Suspect]
     Active Substance: RIFABUTIN
     Indication: Mycobacterium abscessus infection
     Dosage: UNK
     Route: 065
  6. RIFABUTIN [Suspect]
     Active Substance: RIFABUTIN
     Indication: Pneumonia

REACTIONS (3)
  - Lung opacity [Unknown]
  - Condition aggravated [Unknown]
  - Cough [Unknown]
